FAERS Safety Report 6439681-X (Version None)
Quarter: 2009Q4

REPORT INFORMATION
  Report Type: 
  Country: None (occurrence: None)
  Receive Date: 20091113
  Receipt Date: 20091104
  Transmission Date: 20100525
  Serious: Yes (Other)
  Sender: FDA-Public Use
  Company Number: VE-PFIZER INC-2009287929

PATIENT
  Age: 41 Year
  Sex: Female
  Weight: 82 kg

DRUGS (2)
  1. ZITHROMAX [Suspect]
     Dosage: UNK
     Route: 042
     Dates: end: 20091001
  2. PARACETAMOL [Concomitant]
     Indication: PYREXIA
     Dosage: UNK
     Route: 048

REACTIONS (1)
  - PHLEBITIS [None]
